FAERS Safety Report 6790721-8 (Version None)
Quarter: 2010Q2

REPORT INFORMATION
  Report Type: 
  Country: None (occurrence: None)
  Receive Date: 20100624
  Receipt Date: 20100621
  Transmission Date: 20101027
  Serious: Yes (Other)
  Sender: FDA-Public Use
  Company Number: US-ELI_LILLY_AND_COMPANY-US201006005782

PATIENT
  Sex: Female

DRUGS (4)
  1. HUMULIN 70/30 [Suspect]
     Indication: DIABETES MELLITUS
     Dosage: 33 U, EACH MORNING
     Dates: start: 20000621
  2. HUMULIN 70/30 [Suspect]
     Dosage: 10 U, EACH EVENING
     Dates: start: 20000621
  3. HUMULIN 70/30 [Suspect]
     Dosage: 33 U, EACH MORNING
     Dates: start: 20000621
  4. HUMULIN 70/30 [Suspect]
     Dosage: 10 U, EACH EVENING
     Dates: start: 20000621

REACTIONS (1)
  - CEREBROVASCULAR ACCIDENT [None]
